FAERS Safety Report 9898422 (Version 1)
Quarter: 2014Q1

REPORT INFORMATION
  Report Type: Spontaneous
  Country: IT (occurrence: IT)
  Receive Date: 20140214
  Receipt Date: 20140214
  Transmission Date: 20141002
  Serious: Yes (Other)
  Sender: FDA-Public Use
  Company Number: IT-PFIZER INC-2014040904

PATIENT
  Age: 45 Year
  Sex: Female

DRUGS (4)
  1. EPIRUBICIN HCL [Suspect]
     Indication: BREAST CANCER
     Dosage: 1 DF, SINGLE
     Route: 042
     Dates: start: 20140116, end: 20140116
  2. CYCLOPHOSPHAMIDE [Suspect]
     Indication: BREAST CANCER
     Dosage: 1 DF, SINGLE
     Route: 042
     Dates: start: 20140116, end: 20140116
  3. 1-(U-D-5^-DEOSSIRIBOFURANOSIL)-5-FLUOROURACIL [Suspect]
     Indication: BREAST CANCER
     Dosage: 1 DF, SINGLE
     Route: 042
     Dates: start: 20140116, end: 20140116
  4. EUTIROX [Concomitant]
     Dosage: 1 DF, UNK
     Route: 048

REACTIONS (1)
  - Supraventricular extrasystoles [Recovering/Resolving]
